FAERS Safety Report 4875024-0 (Version None)
Quarter: 2006Q1

REPORT INFORMATION
  Report Type: 
  Country: None (occurrence: None)
  Receive Date: 20060104
  Receipt Date: 20051228
  Transmission Date: 20060701
  Serious: Yes (Hospitalization)
  Sender: FDA-Public Use
  Company Number: CIP05003015

PATIENT
  Age: 80 Year
  Sex: Male

DRUGS (3)
  1. DANTRIUM [Suspect]
     Dosage: ORAL
     Route: 048
  2. ANALGESICS [Concomitant]
  3. UNSPECIFIED ANALGESIC DRUG [Concomitant]

REACTIONS (2)
  - BLOOD CREATINE PHOSPHOKINASE INCREASED [None]
  - PYREXIA [None]
